FAERS Safety Report 9248310 (Version 1)
Quarter: 2013Q2

REPORT INFORMATION
  Report Type: Spontaneous
  Country: US (occurrence: None)
  Receive Date: 20130419
  Receipt Date: 20130419
  Transmission Date: 20140414
  Serious: Yes (Other)
  Sender: FDA-Public Use
  Company Number: None

PATIENT
  Age: 26 Year
  Sex: Female
  Weight: 51.26 kg

DRUGS (2)
  1. TAMIFLU [Suspect]
     Indication: INFLUENZA
     Dosage: 1 CAPSULE
     Route: 048
     Dates: start: 20130330, end: 20130402
  2. TAMIFLU [Suspect]
     Indication: INFLUENZA
     Dosage: 1 CAPSULE
     Route: 048
     Dates: start: 20130330, end: 20130402

REACTIONS (5)
  - Rash [None]
  - Rash [None]
  - Paraesthesia oral [None]
  - Paraesthesia oral [None]
  - Drug hypersensitivity [None]
